FAERS Safety Report 8165461-3 (Version None)
Quarter: 2012Q1

REPORT INFORMATION
  Report Type: 
  Country: None (occurrence: None)
  Receive Date: 20120227
  Receipt Date: 20110214
  Transmission Date: 20120608
  Serious: No
  Sender: FDA-Public Use
  Company Number: US-MYLANLABS-2011S1001324

PATIENT
  Age: 73 Year
  Sex: Female

DRUGS (12)
  1. METOPROLOL TARTRATE [Suspect]
     Route: 048
     Dates: start: 20100101, end: 20100101
  2. THYROID TAB [Concomitant]
     Indication: THYROID DISORDER
     Route: 048
     Dates: start: 20100601
  3. METOPROLOL TARTRATE [Suspect]
     Route: 048
     Dates: start: 20100101, end: 20100101
  4. LOSARTAN POTASSIUM [Concomitant]
     Indication: PALPITATIONS
     Route: 048
  5. CALCIUM [Concomitant]
  6. AMARYL [Concomitant]
     Indication: DIABETES MELLITUS
     Route: 048
     Dates: start: 20100101
  7. CREON [Concomitant]
     Indication: PANCREATITIS
     Route: 048
  8. OMEPRAZOLE [Concomitant]
     Indication: GASTRIC ULCER
     Route: 048
  9. ASPIRIN [Concomitant]
  10. ZYRTEC [Concomitant]
  11. METOPROLOL TARTRATE [Suspect]
     Indication: BLOOD PRESSURE INCREASED
     Route: 048
     Dates: start: 20090101, end: 20090101
  12. LANTUS [Concomitant]
     Indication: DIABETES MELLITUS
     Route: 058

REACTIONS (11)
  - TACHYCARDIA [None]
  - BURNING SENSATION [None]
  - HYPERTENSION [None]
  - VISION BLURRED [None]
  - HEADACHE [None]
  - REACTION TO DRUG EXCIPIENTS [None]
  - PALPITATIONS [None]
  - CHEST PAIN [None]
  - HEART RATE IRREGULAR [None]
  - DYSPNOEA [None]
  - HEART RATE INCREASED [None]
